FAERS Safety Report 11071526 (Version 1)
Quarter: 2015Q2

REPORT INFORMATION
  Report Type: Spontaneous
  Country: CN (occurrence: None)
  Receive Date: 20150424
  Receipt Date: 20150424
  Transmission Date: 20150821
  Serious: Yes (Other)
  Sender: FDA-Public Use
  Company Number: 2015SEB00025

PATIENT
  Sex: Male
  Weight: 80 kg

DRUGS (6)
  1. MIACALCIN [Suspect]
     Active Substance: CALCITONIN SALMON
     Indication: MINERAL SUPPLEMENTATION
     Route: 030
     Dates: start: 20141021, end: 20141028
  2. UNSPECIFIED HORMONE THERAPY [Concomitant]
     Active Substance: UNSPECIFIED INGREDIENT
  3. MUSKMELON EXTRACT LYOPHILIZED ( ) [Suspect]
     Active Substance: MUSKMELON
  4. GAMMA GLOBULIN (IMMUNOGLOBULIN G HUMAN) [Concomitant]
  5. MONOSIALOTETRAHEXOSYLGANGLIOSIDE. [Suspect]
     Active Substance: MONOSIALOTETRAHEXOSYLGANGLIOSIDE
     Indication: NEUROPATHY PERIPHERAL
     Route: 042
     Dates: start: 20141021, end: 20141028
  6. SWINE BONE [Suspect]
     Active Substance: SUS SCROFA BONE
     Indication: BONE DISORDER
     Route: 042
     Dates: start: 20141021

REACTIONS (3)
  - Pyrexia [None]
  - Dermatitis bullous [None]
  - Neutrophil count decreased [None]

NARRATIVE: CASE EVENT DATE: 201410
